FAERS Safety Report 7457466-2 (Version None)
Quarter: 2011Q2

REPORT INFORMATION
  Report Type: 
  Country: None (occurrence: None)
  Receive Date: 20110504
  Receipt Date: 20110414
  Transmission Date: 20111010
  Serious: No
  Sender: FDA-Public Use
  Company Number: IE-PFIZER INC-2010139325

PATIENT
  Sex: Female

DRUGS (2)
  1. LYRICA [Concomitant]
  2. TOLTERODINE TARTRATE [Suspect]
     Indication: HYPERTONIC BLADDER

REACTIONS (1)
  - ADVERSE EVENT [None]
